FAERS Safety Report 6102354-7 (Version None)
Quarter: 2009Q1

REPORT INFORMATION
  Report Type: 
  Country: None (occurrence: None)
  Receive Date: 20090304
  Receipt Date: 20080307
  Transmission Date: 20090719
  Serious: Yes (Hospitalization)
  Sender: FDA-Public Use
  Company Number: US-ABBOTT-08P-163-0441342-00

PATIENT
  Sex: Female
  Weight: 54.48 kg

DRUGS (10)
  1. DEPAKENE [Suspect]
     Indication: BIPOLAR DISORDER
     Route: 048
     Dates: start: 20080228
  2. DEPAKENE [Suspect]
     Route: 048
  3. CITALOPRAM HYDROBROMIDE [Suspect]
     Indication: BIPOLAR DISORDER
     Route: 048
  4. MOLINDONE HCL [Suspect]
     Indication: BIPOLAR DISORDER
     Route: 048
  5. TRAZODONE HCL [Concomitant]
     Indication: INSOMNIA
     Dosage: 12.5MG/25
     Route: 048
  6. CITALOPRAM HYDROBROMIDE [Concomitant]
     Route: 048
  7. CITALOPRAM HYDROBROMIDE [Concomitant]
     Route: 048
  8. CITALOPRAM HYDROBROMIDE [Concomitant]
     Route: 048
  9. CITALOPRAM HYDROBROMIDE [Concomitant]
     Route: 048
  10. MOLINDONE HCL [Concomitant]
     Route: 048

REACTIONS (5)
  - AGITATION [None]
  - ANGER [None]
  - DEPRESSION [None]
  - FEELING OF DESPAIR [None]
  - INSOMNIA [None]
